FAERS Safety Report 6017302-8 (Version None)
Quarter: 2008Q4

REPORT INFORMATION
  Report Type: 
  Country: None (occurrence: None)
  Receive Date: 20081223
  Receipt Date: 20081204
  Transmission Date: 20090506
  Serious: Yes (Hospitalization)
  Sender: FDA-Public Use
  Company Number: GB-BAXTER-2008BH010782

PATIENT
  Age: 47 Year
  Sex: Male

DRUGS (2)
  1. SODIUM CHLORIDE 0.9% IN PLASTIC CONTAINER [Suspect]
     Indication: INTRAVENOUS CATHETER MANAGEMENT
     Route: 042
     Dates: start: 20081008, end: 20081008
  2. INFLIXIMAB [Concomitant]
     Indication: CROHN'S DISEASE
     Route: 042

REACTIONS (1)
  - CARDIAC ARREST [None]
